FAERS Safety Report 8087948-4 (Version None)
Quarter: 2012Q1

REPORT INFORMATION
  Report Type: 
  Country: None (occurrence: None)
  Receive Date: 20120130
  Receipt Date: 20120119
  Transmission Date: 20120608
  Serious: Yes (Other)
  Sender: FDA-Public Use
  Company Number: US-ASTRAZENECA-2012SE04018

PATIENT
  Age: 20 Year
  Sex: Male
  Weight: 120.2 kg

DRUGS (4)
  1. REMICADE [Suspect]
     Indication: COLITIS ULCERATIVE
     Route: 042
     Dates: start: 20110616
  2. NEXIUM [Suspect]
     Indication: GASTROOESOPHAGEAL REFLUX DISEASE
     Route: 048
     Dates: start: 20110601
  3. LIALDA [Suspect]
     Indication: COLITIS ULCERATIVE
     Route: 048
     Dates: start: 20110908, end: 20111225
  4. MULTI-VITAMINS [Concomitant]
     Route: 048
     Dates: start: 20110601

REACTIONS (9)
  - COLITIS ULCERATIVE [None]
  - WEIGHT DECREASED [None]
  - BLOOD COUNT ABNORMAL [None]
  - ABDOMINAL PAIN UPPER [None]
  - ASTHENIA [None]
  - FEELING ABNORMAL [None]
  - PAIN [None]
  - DIARRHOEA [None]
  - INSOMNIA [None]
